FAERS Safety Report 4700084-7 (Version None)
Quarter: 2005Q2

REPORT INFORMATION
  Report Type: 
  Country: None (occurrence: None)
  Receive Date: 20050623
  Receipt Date: 20050609
  Transmission Date: 20051028
  Serious: Yes (Life-Threatening, Hospitalization)
  Sender: FDA-Public Use
  Company Number: 200416266BCC

PATIENT
  Age: 71 Year
  Sex: Female
  Weight: 63.9572 kg

DRUGS (25)
  1. ALEVE [Suspect]
     Indication: DEMENTIA ALZHEIMER'S TYPE
     Dosage: BID, ORAL
     Route: 048
     Dates: start: 20040801, end: 20041216
  2. ALEVE [Suspect]
     Indication: PROPHYLAXIS
     Dosage: BID, ORAL
     Route: 048
     Dates: start: 20040801, end: 20041216
  3. ASPIRIN [Concomitant]
  4. TRIAMTERENE AND HYDROCHLOROTHIAZIDE [Concomitant]
  5. LISINOPRIL [Concomitant]
  6. LOVASTATIN [Concomitant]
  7. PREMARIN [Concomitant]
  8. LEVOTHYROXINE [Concomitant]
  9. LORATADINE [Concomitant]
  10. AMITRIPTYLINE [Concomitant]
  11. ALPHAGAN [Concomitant]
  12. LUMIGAN [Concomitant]
  13. TIMOLOL MALEATE [Concomitant]
  14. MULTI-VITAMIN [Concomitant]
  15. VITAMIN E [Concomitant]
  16. GLUCOSAMINE/CHONDROITIN [Concomitant]
  17. CALCIUM GLUCONATE [Concomitant]
  18. IRON [Concomitant]
  19. VITAMIN A+D [Concomitant]
  20. LUTEIN [Concomitant]
  21. OCUVITE [Concomitant]
  22. MAGNESIUM [Concomitant]
  23. ZINC [Concomitant]
  24. ASCORBIC ACID [Concomitant]
  25. POTASSIUM CHLORIDE [Concomitant]

REACTIONS (7)
  - ABDOMINAL DISTENSION [None]
  - BLOOD PRESSURE SYSTOLIC INCREASED [None]
  - CORONARY ARTERY OCCLUSION [None]
  - FALL [None]
  - LOSS OF CONSCIOUSNESS [None]
  - MYOCARDIAL INFARCTION [None]
  - PROCEDURAL COMPLICATION [None]
